FAERS Safety Report 11662008 (Version 2)
Quarter: 2016Q1

REPORT INFORMATION
  Report Type: Spontaneous
  Country: IT (occurrence: IT)
  Receive Date: 20151026
  Receipt Date: 20160302
  Transmission Date: 20160525
  Serious: Yes (Other)
  Sender: FDA-Public Use
  Company Number: PHHY2015IT135139

PATIENT
  Age: 47 Year
  Sex: Male

DRUGS (4)
  1. VERAPAMIL [Concomitant]
     Active Substance: VERAPAMIL HYDROCHLORIDE
     Indication: PARAESTHESIA
     Route: 048
  2. ALPRAZOLAM. [Suspect]
     Active Substance: ALPRAZOLAM
     Indication: INSOMNIA
     Route: 065
     Dates: start: 20150605, end: 20150608
  3. ALPRAZOLAM. [Suspect]
     Active Substance: ALPRAZOLAM
     Indication: INSOMNIA
     Dosage: 1 MG, PRN
     Route: 048
     Dates: start: 20150604, end: 20150605
  4. TERAZOSIN [Concomitant]
     Active Substance: TERAZOSIN\TERAZOSIN HYDROCHLORIDE
     Indication: BENIGN PROSTATIC HYPERPLASIA
     Dosage: 5 MG, UNK
     Route: 048

REACTIONS (7)
  - Dehydration [Recovered/Resolved]
  - Confusional state [Recovered/Resolved]
  - Aphasia [Recovered/Resolved]
  - Sopor [Recovered/Resolved]
  - Psychomotor hyperactivity [Recovered/Resolved]
  - Disorientation [Recovered/Resolved]
  - Acute kidney injury [Recovered/Resolved]

NARRATIVE: CASE EVENT DATE: 20150605
